FAERS Safety Report 7638485-X (Version None)
Quarter: 2011Q3

REPORT INFORMATION
  Report Type: 
  Country: None (occurrence: None)
  Receive Date: 20110726
  Receipt Date: 20110726
  Transmission Date: 20111222
  Serious: No
  Sender: FDA-Public Use
  Company Number: None

PATIENT
  Sex: Female
  Weight: 119.296 kg

DRUGS (13)
  1. GLIPIZIDE [Suspect]
     Indication: TYPE 2 DIABETES MELLITUS
     Dosage: 1 TAB BID PO
     Route: 048
     Dates: start: 20010101, end: 20030101
  2. FUROSEMIDE [Suspect]
     Indication: MYOCARDIAL INFARCTION
     Dosage: 1 TAB EVERY MORNING PO
     Route: 048
     Dates: start: 20010101, end: 20030101
  3. FUROSEMIDE [Suspect]
     Indication: CORONARY ARTERY DISEASE
     Dosage: 1 TAB EVERY MORNING PO
     Route: 048
     Dates: start: 20010101, end: 20030101
  4. FUROSEMIDE [Suspect]
     Indication: HYPERTENSION
     Dosage: 1 TAB EVERY MORNING PO
     Route: 048
     Dates: start: 20010101, end: 20030101
  5. METFORMIN HCL [Suspect]
     Indication: TYPE 2 DIABETES MELLITUS
     Dosage: 1 TAB TID PO
     Route: 048
     Dates: start: 20010101, end: 20030101
  6. QUINAPRIL [Suspect]
     Indication: MYOCARDIAL INFARCTION
     Dosage: 1 TAB BID PO
     Route: 048
     Dates: start: 20010101, end: 20030101
  7. QUINAPRIL [Suspect]
     Indication: HYPERTENSION
     Dosage: 1 TAB BID PO
     Route: 048
     Dates: start: 20010101, end: 20030101
  8. QUINAPRIL [Suspect]
     Indication: CORONARY ARTERY DISEASE
     Dosage: 1 TAB BID PO
     Route: 048
     Dates: start: 20010101, end: 20030101
  9. METOPROLOL SUCCINATE [Suspect]
     Indication: HYPERTENSION
     Dosage: 1 TAB BID PO
     Route: 048
     Dates: start: 20010101, end: 20030101
  10. METOPROLOL SUCCINATE [Suspect]
     Indication: MYOCARDIAL INFARCTION
     Dosage: 1 TAB BID PO
     Route: 048
     Dates: start: 20010101, end: 20030101
  11. METOPROLOL SUCCINATE [Suspect]
     Indication: CORONARY ARTERY DISEASE
     Dosage: 1 TAB BID PO
     Route: 048
     Dates: start: 20010101, end: 20030101
  12. SIMVASTATIN [Suspect]
     Indication: HYPERLIPIDAEMIA
     Dosage: 1 TAB EVERY EVENING PO
     Route: 048
     Dates: start: 20010101, end: 20030101
  13. ACETAMINOPHEN W/ CODEINE [Suspect]
     Indication: OSTEOARTHRITIS
     Dosage: 1 TABLET BID PO
     Route: 048
     Dates: start: 20030101

REACTIONS (10)
  - MYALGIA [None]
  - ABDOMINAL DISTENSION [None]
  - CONDITION AGGRAVATED [None]
  - MALAISE [None]
  - DIABETES MELLITUS INADEQUATE CONTROL [None]
  - PRODUCT QUALITY ISSUE [None]
  - DIARRHOEA [None]
  - DRUG EFFECT DECREASED [None]
  - NAUSEA [None]
  - HEADACHE [None]
